FAERS Safety Report 5782416-4 (Version None)
Quarter: 2008Q2

REPORT INFORMATION
  Report Type: 
  Country: None (occurrence: None)
  Receive Date: 20080623
  Receipt Date: 20080610
  Transmission Date: 20081010
  Serious: Yes (Other)
  Sender: FDA-Public Use
  Company Number: PHNU2008DE01734

PATIENT
  Sex: Female

DRUGS (9)
  1. RASILEZ [Suspect]
     Indication: HYPERTENSION
     Dosage: 75 MG/D
     Route: 048
     Dates: start: 20080420, end: 20080421
  2. RASILEZ [Interacting]
     Dosage: 150 MG/D
     Route: 048
     Dates: start: 20080421
  3. TREVILOR [Interacting]
     Indication: DEPRESSION
     Dosage: 75-0-37,5 MG/D
  4. DELIX [Concomitant]
     Indication: HYPERTENSION
     Dosage: 2.5 DF, BID
     Dates: start: 20070501, end: 20080401
  5. DELIX [Concomitant]
     Dosage: 2.5-0-5 MG/D
     Dates: start: 20080401, end: 20080401
  6. DELIX [Concomitant]
     Dosage: 2.5 MG, BID
     Dates: start: 20080401, end: 20080401
  7. DELIX [Concomitant]
     Dosage: 2.5-0-5 MG/D
     Dates: start: 20080401
  8. DOXAZOSIN MESYLATE [Concomitant]
     Dosage: 0.5 MG, BID
     Dates: end: 20080401
  9. DOXAZOSIN MESYLATE [Concomitant]
     Dosage: 0.5-0-1-0 MG/D
     Dates: start: 20080401

REACTIONS (7)
  - BLOOD PARATHYROID HORMONE INCREASED [None]
  - BLOOD PRESSURE INADEQUATELY CONTROLLED [None]
  - BLOOD PRESSURE INCREASED [None]
  - BLOOD PRESSURE SYSTOLIC INCREASED [None]
  - DRUG INTERACTION [None]
  - HYPERTENSIVE CRISIS [None]
  - RENIN INCREASED [None]
